FAERS Safety Report 20019783 (Version 1)
Quarter: 2021Q4

REPORT INFORMATION
  Report Type: Other
  Country: JP (occurrence: None)
  Receive Date: 20211101
  Receipt Date: 20211101
  Transmission Date: 20220303
  Serious: Yes (Other)
  Sender: FDA-Public Use
  Company Number: JP-ROCHE-2946785

PATIENT
  Age: 68 Year
  Sex: Male

DRUGS (2)
  1. ATEZOLIZUMAB [Suspect]
     Active Substance: ATEZOLIZUMAB
     Indication: Hepatocellular carcinoma
     Route: 065
  2. BEVACIZUMAB [Suspect]
     Active Substance: BEVACIZUMAB
     Indication: Hepatocellular carcinoma
     Route: 065

REACTIONS (6)
  - Hepatic function abnormal [Recovered/Resolved]
  - Tumour lysis syndrome [Recovered/Resolved]
  - Metastases to adrenals [Recovered/Resolved]
  - Disease progression [Recovered/Resolved]
  - Immune system disorder [Recovered/Resolved]
  - Drug ineffective [Unknown]
